FAERS Safety Report 14704888 (Version 2)
Quarter: 2018Q2

REPORT INFORMATION
  Report Type: Spontaneous
  Country: CN (occurrence: CN)
  Receive Date: 20180402
  Receipt Date: 20180406
  Transmission Date: 20180711
  Serious: Yes (Other)
  Sender: FDA-Public Use
  Company Number: CN-ASTELLAS-2018US015189

PATIENT
  Age: 10 Year
  Sex: Female

DRUGS (6)
  1. BUSULFAN. [Concomitant]
     Active Substance: BUSULFAN
     Indication: STEM CELL TRANSPLANT
     Dosage: 1.1 MG/KG, EVERY 6 HOURS (ON DAYS -4 TO -2 )
     Route: 042
  2. MYCOPHENOLATE MOFETIL. [Concomitant]
     Active Substance: MYCOPHENOLATE MOFETIL
     Indication: PROPHYLAXIS AGAINST GRAFT VERSUS HOST DISEASE
     Dosage: UNK UNK, UNKNOWN FREQ. (SINCE DAYS +5)
     Route: 065
  3. TACROLIMUS. [Suspect]
     Active Substance: TACROLIMUS
     Indication: PROPHYLAXIS AGAINST GRAFT VERSUS HOST DISEASE
     Dosage: UNK UNK, UNKNOWN FREQ. (SINCE DAYS +5)
     Route: 065
  4. FLUDARABINE [Concomitant]
     Active Substance: FLUDARABINE PHOSPHATE
     Indication: STEM CELL TRANSPLANT
     Dosage: 40 MG/M2, 4 TIMES DAILY (DAYS -5 THROUGH -2; 40 MG/M2 X 4)
     Route: 065
  5. CYCLOPHOSPHAMIDE. [Concomitant]
     Active Substance: CYCLOPHOSPHAMIDE
     Indication: PROPHYLAXIS AGAINST GRAFT VERSUS HOST DISEASE
     Dosage: 40 MG/KG, UNKNOWN FREQ. (ON DAYS +3 AND 4)
     Route: 065
  6. THYMOGLOBULIN [Concomitant]
     Active Substance: LAPINE T-LYMPHOCYTE IMMUNE GLOBULIN
     Indication: PRODUCT USED FOR UNKNOWN INDICATION
     Dosage: 2.5 MG/KG, UNKNOWN FREQ. (ON DAYS -4 TO-2)
     Route: 065

REACTIONS (10)
  - Cystitis haemorrhagic [Recovered/Resolved]
  - Oral cavity fistula [Unknown]
  - Thrombotic microangiopathy [Recovered/Resolved]
  - Blood creatinine increased [Recovered/Resolved]
  - Febrile neutropenia [Unknown]
  - Thrombocytopenia [Recovered/Resolved]
  - Hypertension [Recovered/Resolved]
  - Blood lactate dehydrogenase increased [Recovered/Resolved]
  - Off label use [Unknown]
  - Fistula [Unknown]
